FAERS Safety Report 9604725 (Version 1)
Quarter: 2013Q4

REPORT INFORMATION
  Report Type: Spontaneous
  Country: US (occurrence: US)
  Receive Date: 20131008
  Receipt Date: 20131008
  Transmission Date: 20140711
  Serious: No
  Sender: FDA-Public Use
  Company Number: US-009507513-1310USA003169

PATIENT
  Age: 38 Year
  Sex: Female

DRUGS (2)
  1. CLARITIN LIQUIGELS [Suspect]
     Indication: NASAL DISCOMFORT
     Dosage: UNK, UNKNOWN
     Route: 048
  2. CLARITIN LIQUIGELS [Suspect]
     Indication: EYE PRURITUS

REACTIONS (1)
  - Drug effect decreased [Unknown]
